FAERS Safety Report 8216521-X (Version None)
Quarter: 2012Q1

REPORT INFORMATION
  Report Type: 
  Country: None (occurrence: None)
  Receive Date: 20120316
  Receipt Date: 20120313
  Transmission Date: 20120608
  Serious: Yes (Other)
  Sender: FDA-Public Use
  Company Number: US-ABBOTT-12P-163-0907153-00

PATIENT
  Age: 55 Year
  Sex: Female

DRUGS (5)
  1. HUMIRA [Suspect]
     Indication: RHEUMATOID ARTHRITIS
     Dates: start: 20111219, end: 20120312
  2. MOBIC [Concomitant]
     Indication: RHEUMATOID ARTHRITIS
     Dosage: DAILY
  3. LEFLUNOMIDE [Concomitant]
     Indication: RHEUMATOID ARTHRITIS
     Dosage: DAILY
  4. LEFLUNOMIDE [Concomitant]
     Dosage: DROPPED IN HALF
  5. ENABLEX [Concomitant]
     Indication: INCONTINENCE
     Dosage: DAILY

REACTIONS (2)
  - ALOPECIA [None]
  - MENISCUS LESION [None]
